FAERS Safety Report 4282632-7 (Version None)
Quarter: 2004Q1

REPORT INFORMATION
  Report Type: 
  Country: None (occurrence: None)
  Receive Date: 20040130
  Receipt Date: 20030102
  Transmission Date: 20041129
  Serious: No
  Sender: FDA-Public Use
  Company Number: US-BRISTOL-MYERS SQUIBB COMPANY-12149662

PATIENT
  Age: 6 Decade
  Sex: Female
  Weight: 73 kg

DRUGS (4)
  1. SERZONE [Suspect]
     Indication: FIBROMYALGIA
     Dosage: AT BEDTIME
     Route: 048
     Dates: start: 20021209, end: 20021230
  2. NEURONTIN [Concomitant]
  3. IBUPROFEN [Concomitant]
  4. MULTIVITAMINS + IRON [Concomitant]

REACTIONS (2)
  - DEPRESSION [None]
  - INSOMNIA [None]
